FAERS Safety Report 24009434 (Version 1)
Quarter: 2024Q2

REPORT INFORMATION
  Report Type: Spontaneous
  Country: CN (occurrence: CN)
  Receive Date: 20240625
  Receipt Date: 20240625
  Transmission Date: 20240716
  Serious: Yes (Death, Hospitalization, Other)
  Sender: FDA-Public Use
  Company Number: CN-SUN PHARMACEUTICAL INDUSTRIES LTD-2024R1-452432

PATIENT
  Age: 61 Year
  Sex: Male

DRUGS (3)
  1. CISPLATIN [Suspect]
     Active Substance: CISPLATIN
     Indication: Chemotherapy
     Dosage: 25 MILLIGRAM/SQ. METER, DAILY/DAYS 1-3/EVERY 21 DAYS
     Route: 042
  2. TEMOZOLOMIDE [Suspect]
     Active Substance: TEMOZOLOMIDE
     Indication: Chemotherapy
     Dosage: 200 MILLIGRAM/SQ. METER, DAILY/ DAY 1-5
     Route: 048
  3. PEMBROLIZUMAB [Suspect]
     Active Substance: PEMBROLIZUMAB
     Indication: Chemotherapy
     Dosage: 2 MILLIGRAM/KILOGRAM EVERY 3 WEEKS
     Route: 042

REACTIONS (2)
  - Death [Fatal]
  - Disease progression [Unknown]
